FAERS Safety Report 16125435 (Version 3)
Quarter: 2019Q2

REPORT INFORMATION
  Report Type: Spontaneous
  Country: US (occurrence: US)
  Receive Date: 20190327
  Receipt Date: 20190411
  Transmission Date: 20190711
  Serious: Yes (Other)
  Sender: FDA-Public Use
  Company Number: US-AMGEN-USASP2019045577

PATIENT
  Age: 63 Year
  Sex: Female

DRUGS (5)
  1. FORTEO [Concomitant]
     Active Substance: TERIPARATIDE
     Dosage: UNK
  2. ENBREL [Suspect]
     Active Substance: ETANERCEPT
     Dosage: 50 MILLIGRAM, 2 TIMES/WK
     Route: 065
  3. ENBREL [Suspect]
     Active Substance: ETANERCEPT
     Indication: PSORIATIC ARTHROPATHY
     Dosage: UNK
     Route: 065
     Dates: start: 2009
  4. ENBREL [Suspect]
     Active Substance: ETANERCEPT
     Indication: PSORIASIS
     Dosage: 50 MILLIGRAM, 2 TIMES/WK
     Route: 065
     Dates: start: 20190315
  5. TYMLOS [Concomitant]
     Active Substance: ABALOPARATIDE
     Dosage: UNK (NIGHTLY)

REACTIONS (12)
  - Spinal stenosis [Unknown]
  - Lumbar vertebral fracture [Unknown]
  - Osteoporosis [Unknown]
  - Hip arthroplasty [Unknown]
  - Psoriasis [Not Recovered/Not Resolved]
  - Fall [Unknown]
  - Cervical vertebral fracture [Unknown]
  - Comminuted fracture [Unknown]
  - Stress [Unknown]
  - Kyphosis [Unknown]
  - Off label use [Unknown]
  - Osteoarthritis [Unknown]

NARRATIVE: CASE EVENT DATE: 201608
